FAERS Safety Report 21531937 (Version 1)
Quarter: 2022Q4

REPORT INFORMATION
  Report Type: Spontaneous
  Country: US (occurrence: None)
  Receive Date: 20221101
  Receipt Date: 20221101
  Transmission Date: 20230113
  Serious: Yes (Death, Hospitalization, Other)
  Sender: FDA-Public Use
  Company Number: US-Unichem Pharmaceuticals (USA) Inc-UCM202210-001127

PATIENT
  Age: 33 Year
  Sex: Female

DRUGS (5)
  1. METFORMIN HYDROCHLORIDE [Suspect]
     Active Substance: METFORMIN HYDROCHLORIDE
     Indication: Intentional overdose
     Dosage: 100 G
  2. SITAGLIPTIN [Suspect]
     Active Substance: SITAGLIPTIN
     Indication: Intentional overdose
     Dosage: UNKNOWN
  3. EMPAGLIFLOZIN [Suspect]
     Active Substance: EMPAGLIFLOZIN
     Indication: Intentional overdose
     Dosage: UNKNOWN
  4. SERTRALINE [Suspect]
     Active Substance: SERTRALINE HYDROCHLORIDE
     Indication: Intentional overdose
     Dosage: UNKNOWN
  5. GLIMEPIRIDE [Concomitant]
     Active Substance: GLIMEPIRIDE
     Indication: Type 2 diabetes mellitus
     Dosage: UNKNOWN

REACTIONS (9)
  - Eosinophilic myocarditis [Fatal]
  - Cardiac arrest [Fatal]
  - Respiratory arrest [Fatal]
  - Metabolic acidosis [Fatal]
  - Hypotension [Unknown]
  - Embolic cerebral infarction [Fatal]
  - Pulmonary embolism [Fatal]
  - Intentional overdose [Fatal]
  - Blood lactic acid increased [Fatal]
